FAERS Safety Report 7373922-X (Version None)
Quarter: 2011Q1

REPORT INFORMATION
  Report Type: 
  Country: None (occurrence: None)
  Receive Date: 20110325
  Receipt Date: 20110322
  Transmission Date: 20110831
  Serious: No
  Sender: FDA-Public Use
  Company Number: US-PFIZER INC-2011063669

PATIENT
  Sex: Male
  Weight: 95.238 kg

DRUGS (3)
  1. ROPINIROLE [Concomitant]
     Indication: RESTLESS LEGS SYNDROME
     Dosage: UNK
     Dates: start: 20100101
  2. LYRICA [Concomitant]
     Indication: RESTLESS LEGS SYNDROME
     Dosage: UNK
     Dates: start: 20100101
  3. PRISTIQ [Suspect]
     Indication: DEPRESSION
     Dosage: 50 MG, DAILY
     Route: 048
     Dates: start: 20090101

REACTIONS (8)
  - DRUG INEFFECTIVE [None]
  - NAUSEA [None]
  - BLOOD CHOLESTEROL INCREASED [None]
  - HEADACHE [None]
  - DIARRHOEA [None]
  - DIZZINESS [None]
  - WRONG TECHNIQUE IN DRUG USAGE PROCESS [None]
  - MEDICATION RESIDUE [None]
